FAERS Safety Report 4284747-6 (Version None)
Quarter: 2004Q1

REPORT INFORMATION
  Report Type: 
  Country: None (occurrence: None)
  Receive Date: 20040130
  Receipt Date: 20040107
  Transmission Date: 20041129
  Serious: Yes (Death, Other)
  Sender: FDA-Public Use
  Company Number: JP_040102491

PATIENT
  Age: 73 Year
  Sex: Male

DRUGS (3)
  1. GEMZAR-IV (GEMCITABINE) [Suspect]
     Indication: EXTRAVASATION
     Dosage: 1000 MG/DAY/OTHER
     Dates: start: 20010605
  2. GEMZAR-IV (GEMCITABINE) [Suspect]
     Indication: METASTASES TO LYMPH NODES
     Dosage: 1000 MG/DAY/OTHER
     Dates: start: 20010605
  3. GEMZAR-IV (GEMCITABINE) [Suspect]
     Indication: PANCREATIC CARCINOMA
     Dosage: 1000 MG/DAY/OTHER
     Dates: start: 20010605

REACTIONS (4)
  - ASCITES [None]
  - HEPATIC FAILURE [None]
  - METASTASES TO LIVER [None]
  - PLEURAL EFFUSION [None]
